FAERS Safety Report 9031811 (Version 1)
Quarter: 2013Q1

REPORT INFORMATION
  Report Type: Spontaneous
  Country: US (occurrence: US)
  Receive Date: 20130124
  Receipt Date: 20130124
  Transmission Date: 20140127
  Serious: Yes (Other)
  Sender: FDA-Public Use
  Company Number: US-PFIZER INC-2013024368

PATIENT
  Age: 71 Year
  Sex: Female

DRUGS (2)
  1. IBUPROFEN [Suspect]
     Indication: HEADACHE
     Dosage: 1600MG PER DAY
     Route: 048
  2. IBUPROFEN [Suspect]
     Indication: BACK PAIN

REACTIONS (2)
  - Renal tubular acidosis [Recovering/Resolving]
  - Renal failure acute [Recovering/Resolving]
